FAERS Safety Report 6681025-2 (Version None)
Quarter: 2010Q2

REPORT INFORMATION
  Report Type: 
  Country: None (occurrence: None)
  Receive Date: 20100414
  Receipt Date: 20100402
  Transmission Date: 20101027
  Serious: Yes (Other)
  Sender: FDA-Public Use
  Company Number: US-WYE-H14473610

PATIENT
  Sex: Male

DRUGS (1)
  1. EFFEXOR [Suspect]
     Indication: DEPRESSION
     Route: 064

REACTIONS (5)
  - AGITATION NEONATAL [None]
  - DRUG EXPOSURE DURING PREGNANCY [None]
  - HYPERTONIA NEONATAL [None]
  - NEONATAL RESPIRATORY DEPRESSION [None]
  - POOR SUCKING REFLEX [None]
